FAERS Safety Report 14841522 (Version 2)
Quarter: 2018Q2

REPORT INFORMATION
  Report Type: Spontaneous
  Country: BG (occurrence: BG)
  Receive Date: 20180503
  Receipt Date: 20180517
  Transmission Date: 20180711
  Serious: Yes (Other)
  Sender: FDA-Public Use
  Company Number: BG-BAYER-2018-079787

PATIENT
  Age: 59 Year
  Sex: Male

DRUGS (1)
  1. NEXAVAR [Suspect]
     Active Substance: SORAFENIB
     Indication: RENAL CELL CARCINOMA
     Dosage: 800 MG DAILY
     Dates: start: 201511

REACTIONS (9)
  - Rash macular [Recovered/Resolved]
  - Drug ineffective [None]
  - Lymphadenopathy mediastinal [None]
  - Fatigue [Recovered/Resolved]
  - Renal cell carcinoma [None]
  - Metastases to lung [None]
  - Pancreatic carcinoma metastatic [None]
  - Burning sensation [Recovered/Resolved]
  - Nausea [Recovered/Resolved]

NARRATIVE: CASE EVENT DATE: 201605
